FAERS Safety Report 8553899-1 (Version None)
Quarter: 2012Q3

REPORT INFORMATION
  Report Type: 
  Country: None (occurrence: None)
  Receive Date: 20120731
  Receipt Date: 20120718
  Transmission Date: 20120928
  Serious: No
  Sender: FDA-Public Use
  Company Number: US-JNJFOC-20120709747

PATIENT
  Sex: Male

DRUGS (8)
  1. ATIVAN [Concomitant]
     Route: 048
  2. DEXILANT [Concomitant]
     Route: 048
  3. LEVOTHYROXINE SODIUM [Concomitant]
     Route: 048
  4. INVEGA SUSTENNA [Suspect]
     Indication: SCHIZOPHRENIA
     Route: 030
     Dates: start: 20110801
  5. LAMOTRIGINE [Concomitant]
     Route: 048
  6. PROZAC [Concomitant]
     Route: 048
  7. COGENTIN [Concomitant]
     Route: 048
  8. METFORMIN HYDROCHLORIDE [Concomitant]
     Indication: DIABETES MELLITUS
     Route: 048

REACTIONS (1)
  - FATIGUE [None]
